FAERS Safety Report 9613646 (Version 7)
Quarter: 2014Q1

REPORT INFORMATION
  Report Type: Report from Study
  Country: TH (occurrence: TH)
  Receive Date: 20131010
  Receipt Date: 20140307
  Transmission Date: 20141002
  Serious: Yes (Hospitalization)
  Sender: FDA-Public Use
  Company Number: TH-009507513-1307THA014706

PATIENT
  Age: 70 Year
  Sex: Male
  Weight: 62.7 kg

DRUGS (22)
  1. BLINDED VARICELLA-ZOSTER VIRUS VACCINE INACTIVATED (OKA/MERCK) [Suspect]
     Indication: PROPHYLAXIS
     Route: 058
     Dates: start: 20130326, end: 20130326
  2. BLINDED VARICELLA-ZOSTER VIRUS VACCINE INACTIVATED (OKA/MERCK) [Suspect]
     Route: 058
     Dates: start: 20121218, end: 20121218
  3. BLINDED VARICELLA-ZOSTER VIRUS VACCINE INACTIVATED (OKA/MERCK) [Suspect]
     Route: 058
     Dates: start: 20130122, end: 20130122
  4. BLINDED VARICELLA-ZOSTER VIRUS VACCINE INACTIVATED (OKA/MERCK) [Suspect]
     Route: 058
     Dates: start: 20130226, end: 20130226
  5. DEXAMETHASONE [Suspect]
     Indication: CHEMOTHERAPY
     Dosage: 10 MG, QID
     Route: 048
     Dates: start: 20130730, end: 20130803
  6. DEXAMETHASONE [Suspect]
     Dosage: 10 MG, QID
     Route: 048
     Dates: start: 20130618, end: 20130621
  7. ENDOXAN [Suspect]
     Indication: CHEMOTHERAPY
     Dosage: UNK UNK, BID
     Route: 048
     Dates: start: 20130730, end: 20130803
  8. ENDOXAN [Suspect]
     Indication: CHEMOTHERAPY
     Dosage: 250 MG, BID
     Route: 048
     Dates: start: 20130618, end: 20130621
  9. ANISE OIL (+) ANTIMONY POTASSIUM TARTRATE (+) BENZOIC ACID (+) CAMPHOR [Concomitant]
     Indication: PROPHYLAXIS
     Dosage: UNK, PRN
     Route: 048
     Dates: start: 20120925
  10. CYANOCOBALAMIN (+) PYRIDOXINE (+) THIAMINE [Concomitant]
     Dosage: UNK, TID
     Route: 048
     Dates: start: 20121127
  11. LOSARTAN POTASSIUM [Concomitant]
     Indication: HYPERTENSION
     Dosage: 50 MG, QD
     Route: 048
     Dates: start: 200705
  12. AMLODIPINE [Concomitant]
     Indication: HYPERTENSION
     Dosage: 5 MG, QD
     Route: 048
     Dates: start: 200705
  13. SIMVASTATIN [Concomitant]
     Indication: DYSLIPIDAEMIA
     Dosage: 10 MG, QD
     Route: 048
     Dates: start: 200705
  14. ASPIRIN [Concomitant]
     Dosage: 81 MG, QD
     Route: 048
     Dates: start: 200705
  15. FOLIC ACID [Concomitant]
     Indication: PROPHYLAXIS
     Dosage: 5 MG, QD
     Route: 048
     Dates: start: 20130129
  16. SULFAMETHOXAZOLE (+) TRIMETHOPRIM [Concomitant]
     Indication: CHEMOTHERAPY
     Dosage: TOTAL DAILY DOSE: 1 TABLET, QOD
     Route: 048
     Dates: start: 20130227
  17. CLOTRIMAZOLE [Concomitant]
     Indication: RASH PRURITIC
     Dosage: UNK
     Dates: start: 20130618, end: 20130729
  18. OMEPRAZOLE [Concomitant]
     Indication: PROPHYLAXIS
     Dosage: UNK
     Dates: start: 20130618
  19. FOLIC ACID [Concomitant]
     Indication: PROPHYLAXIS
     Dosage: UNK
     Dates: start: 20130618
  20. BACTRIM [Concomitant]
     Indication: INFECTION PROPHYLAXIS
     Dosage: UNK
     Dates: start: 20130618
  21. ATIVAN [Concomitant]
     Indication: PROPHYLAXIS
     Dosage: UNK
     Dates: start: 20130618
  22. PLASIL [Concomitant]
     Indication: PROPHYLAXIS
     Dosage: UNK
     Dates: start: 20130618, end: 20130627

REACTIONS (2)
  - Febrile neutropenia [Recovered/Resolved]
  - Febrile neutropenia [Recovered/Resolved]
